FAERS Safety Report 6990612-3 (Version None)
Quarter: 2010Q3

REPORT INFORMATION
  Report Type: 
  Country: None (occurrence: None)
  Receive Date: 20100916
  Receipt Date: 20100719
  Transmission Date: 20110219
  Serious: Yes (Other)
  Sender: FDA-Public Use
  Company Number: US-PFIZER INC-2010090394

PATIENT
  Sex: Female
  Weight: 68.027 kg

DRUGS (3)
  1. LYRICA [Suspect]
     Indication: NERVE INJURY
     Dosage: 100 MG, 4X/DAY
     Dates: start: 20090601
  2. COZAAR [Concomitant]
     Indication: HYPERTENSION
     Dosage: 100 MG, UNK
  3. ALISKIREN [Concomitant]
     Indication: HYPERTENSION
     Dosage: 75 MG, UNK

REACTIONS (3)
  - COGNITIVE DISORDER [None]
  - HEADACHE [None]
  - NERVE INJURY [None]
